FAERS Safety Report 22393053 (Version 1)
Quarter: 2023Q2

REPORT INFORMATION
  Report Type: Spontaneous
  Country: CN (occurrence: CN)
  Receive Date: 20230601
  Receipt Date: 20230601
  Transmission Date: 20230722
  Serious: Yes (Other)
  Sender: FDA-Public Use
  Company Number: CN-AMGEN-CHNSP2023092593

PATIENT

DRUGS (1)
  1. XGEVA [Suspect]
     Active Substance: DENOSUMAB
     Indication: Bone giant cell tumour
     Dosage: 120 MILLIGRAM ON DAYS 1, 8, 15, AND 29
     Route: 058

REACTIONS (4)
  - Pathological fracture [Unknown]
  - Bone giant cell tumour [Unknown]
  - Off label use [Unknown]
  - Bone pain [Unknown]
